FAERS Safety Report 17082431 (Version 1)
Quarter: 2019Q4

REPORT INFORMATION
  Report Type: Spontaneous
  Country: US (occurrence: US)
  Receive Date: 20191127
  Receipt Date: 20191127
  Transmission Date: 20200122
  Serious: Yes (Hospitalization)
  Sender: FDA-Public Use
  Company Number: US-NOVOPROD-698154

PATIENT
  Age: 88 Year
  Sex: Female

DRUGS (2)
  1. LEVEMIR [Suspect]
     Active Substance: INSULIN DETEMIR
     Indication: TYPE 2 DIABETES MELLITUS
     Dosage: 27 IU, QD (12 UNITS QAM AND 15 UNITS QPM )
     Route: 058
     Dates: start: 2016
  2. LEVEMIR [Suspect]
     Active Substance: INSULIN DETEMIR
     Dosage: 20 IU, QD (DECREASED TO 10 UNITS AM AND 10 UNITS QPM )
     Route: 058

REACTIONS (8)
  - Seizure [Recovered/Resolved]
  - Loss of consciousness [Recovered/Resolved]
  - Pollakiuria [Unknown]
  - Muscle spasms [Unknown]
  - Visual impairment [Unknown]
  - Seizure [Recovered/Resolved]
  - Seizure [Recovered/Resolved]
  - Dizziness [Recovered/Resolved]

NARRATIVE: CASE EVENT DATE: 2019
